FAERS Safety Report 5625805-0 (Version None)
Quarter: 2008Q1

REPORT INFORMATION
  Report Type: 
  Country: None (occurrence: None)
  Receive Date: 20080212
  Receipt Date: 20080212
  Transmission Date: 20080703
  Serious: Yes (Other)
  Sender: FDA-Public Use
  Company Number: None

PATIENT
  Sex: Male

DRUGS (1)
  1. OSELTAMAVIR    12 MG/CC [Suspect]
     Indication: INFLUENZA
     Dosage: 60 MG  BID  PO
     Route: 048
     Dates: start: 20080209, end: 20080210

REACTIONS (2)
  - HALLUCINATION, AUDITORY [None]
  - NIGHTMARE [None]
